FAERS Safety Report 18404070 (Version 1)
Quarter: 2020Q4

REPORT INFORMATION
  Report Type: Report from Study
  Country: FR (occurrence: FR)
  Receive Date: 20201020
  Receipt Date: 20201020
  Transmission Date: 20210114
  Serious: Yes (Hospitalization, Other)
  Sender: FDA-Public Use
  Company Number: FR-TEVA-2020-FR-1839163

PATIENT
  Age: 72 Year
  Sex: Male
  Weight: 71 kg

DRUGS (16)
  1. CARMUSTINE. [Suspect]
     Active Substance: CARMUSTINE
     Indication: B-CELL LYMPHOMA
     Dosage: 580 MG, SINGLE
     Route: 042
     Dates: start: 20191010, end: 20191010
  2. MELPHALAN. [Suspect]
     Active Substance: MELPHALAN
     Indication: B-CELL LYMPHOMA
     Dosage: 270 MG, SINGLE
     Route: 042
     Dates: start: 20191014, end: 20191014
  3. BACTRIM [Concomitant]
     Active Substance: SULFAMETHOXAZOLE\TRIMETHOPRIM
     Indication: INFECTION PROPHYLAXIS
     Dosage: 3 IN 1 WK
     Route: 048
     Dates: start: 202001
  4. CISPLATIN. [Suspect]
     Active Substance: CISPLATIN
     Indication: B-CELL LYMPHOMA
     Dosage: 190 MG, 1 DOSE 3 WEEKS
     Route: 042
     Dates: start: 20190802, end: 20190917
  5. ZELITREX [Concomitant]
     Active Substance: VALACYCLOVIR HYDROCHLORIDE
     Indication: INFECTION PROPHYLAXIS
     Dosage: 1000 MILLIGRAM, BID
     Route: 048
     Dates: start: 20190801
  6. SPECIAFOLDINE [Concomitant]
     Active Substance: FOLIC ACID
     Indication: FOLATE DEFICIENCY
     Dosage: 5 MILLIGRAM, 3XW, UNIT DOSE 15MG
     Route: 048
     Dates: start: 20190802
  7. AVODART [Concomitant]
     Active Substance: DUTASTERIDE
     Indication: BENIGN PROSTATIC HYPERPLASIA
     Dosage: .5 MILLIGRAM DAILY;
     Route: 048
  8. DEXAMETHASONE. [Suspect]
     Active Substance: DEXAMETHASONE
     Indication: B-CELL LYMPHOMA
     Dosage: 40 MG, 4 DOSE DAILY PER 21-DAY CYCLE
     Route: 048
     Dates: start: 20190802, end: 20190920
  9. LANSOPRAZOLE. [Concomitant]
     Active Substance: LANSOPRAZOLE
     Indication: GASTROOESOPHAGEAL REFLUX DISEASE
     Dosage: 30 MILLIGRAM DAILY;
     Route: 048
     Dates: start: 20190928
  10. BISOPROLOL [Concomitant]
     Active Substance: BISOPROLOL
     Indication: HYPERTENSION
     Dosage: 10 MILLIGRAM DAILY;
     Route: 048
  11. ZARZIO [Concomitant]
     Active Substance: FILGRASTIM
     Indication: NEUTROPENIA
     Dosage: 480 MICROGRAM, 3XW
     Route: 065
     Dates: start: 20200414
  12. ZARZIO [Concomitant]
     Active Substance: FILGRASTIM
     Dosage: 480 MICROGRAM, QW
     Route: 058
     Dates: start: 20200311, end: 20200412
  13. ETOPOSIDE. [Suspect]
     Active Substance: ETOPOSIDE
     Indication: B-CELL LYMPHOMA
     Dosage: 190 MG, 2 DOSE DAILY
     Route: 042
     Dates: start: 20191010, end: 20191014
  14. RITUXIMAB. [Suspect]
     Active Substance: RITUXIMAB
     Indication: B-CELL LYMPHOMA
     Dosage: 710 MILLIGRAM, Q3W(740 MG, 1 DOSE 3 WEEKS)
     Route: 042
     Dates: start: 20190802, end: 20190917
  15. CYTARABINE. [Suspect]
     Active Substance: CYTARABINE
     Indication: B-CELL LYMPHOMA
     Dosage: 390 MG, BID
     Route: 042
     Dates: start: 20191010, end: 20191014
  16. CYTARABINE. [Suspect]
     Active Substance: CYTARABINE
     Dosage: 3900 MG, 2 DOSE DAILY PER 21-DAY CYCLE
     Route: 042
     Dates: start: 20190802, end: 20190918

REACTIONS (2)
  - Bronchopulmonary aspergillosis [Recovered/Resolved]
  - Off label use [Unknown]

NARRATIVE: CASE EVENT DATE: 20200407
